FAERS Safety Report 4937728-0 (Version None)
Quarter: 2006Q1

REPORT INFORMATION
  Report Type: 
  Country: None (occurrence: None)
  Receive Date: 20060309
  Receipt Date: 20060222
  Transmission Date: 20060701
  Serious: Yes (Disabling)
  Sender: FDA-Public Use
  Company Number: GBWYE422323FEB06

PATIENT
  Sex: Female

DRUGS (2)
  1. ENBREL [Suspect]
     Indication: DRUG USE FOR UNKNOWN INDICATION
     Route: 058
     Dates: end: 20060106
  2. ENBREL [Suspect]
     Route: 058
     Dates: start: 20060107

REACTIONS (3)
  - DIARRHOEA [None]
  - INJECTION SITE ERYTHEMA [None]
  - MUCOUS STOOLS [None]
